FAERS Safety Report 6494809-0 (Version None)
Quarter: 2009Q4

REPORT INFORMATION
  Report Type: 
  Country: None (occurrence: None)
  Receive Date: 20091214
  Receipt Date: 20090401
  Transmission Date: 20100525
  Serious: No
  Sender: FDA-Public Use
  Company Number: US-BRISTOL-MYERS SQUIBB COMPANY-14562854

PATIENT
  Age: 15 Year
  Sex: Female
  Weight: 69 kg

DRUGS (1)
  1. ABILIFY [Suspect]
     Indication: AFFECTIVE DISORDER
     Dates: start: 20080522

REACTIONS (1)
  - FEELING ABNORMAL [None]
